FAERS Safety Report 9618415 (Version 3)
Quarter: 2013Q4

REPORT INFORMATION
  Report Type: Spontaneous
  Country: US (occurrence: US)
  Receive Date: 20131014
  Receipt Date: 20131114
  Transmission Date: 20140711
  Serious: Yes (Other)
  Sender: FDA-Public Use
  Company Number: US-BAYER-2013-122917

PATIENT
  Age: 50 Year
  Sex: Female
  Weight: 68.93 kg

DRUGS (14)
  1. BETASERON [Suspect]
     Indication: MULTIPLE SCLEROSIS
     Dosage: 0.25 MG, QOD
     Route: 058
     Dates: start: 2004, end: 20130629
  2. AMPYRA [Suspect]
     Indication: GAIT DISTURBANCE
     Dosage: 10 MG, BID
  3. DIMETHYL FUMARATE [Concomitant]
     Dosage: UNK
     Dates: start: 201310
  4. AMANTADINE [Concomitant]
     Dosage: 100 MG, UNK
  5. ZOLOFT [Concomitant]
     Dosage: 25 MG, UNK
  6. MIRAPEX [Concomitant]
     Dosage: 1 MG, UNK
  7. BACLOFEN [Concomitant]
     Dosage: 10 MG, UNK
  8. MAGNESIUM [Concomitant]
     Dosage: 30 MG, UNK
  9. OXYBUTYNIN [Concomitant]
     Dosage: 5 MG, UNK
  10. IRON [Concomitant]
  11. ASPIRIN BUFFERED [Concomitant]
     Dosage: 325 MG, UNK
  12. VITAMIN C [Concomitant]
     Dosage: 500 MG, UNK
  13. CALCIUM W/VITAMIN D NOS [Concomitant]
  14. IBUPROFEN [Concomitant]
     Dosage: 200 MG, UNK

REACTIONS (7)
  - Multiple sclerosis [Unknown]
  - Coordination abnormal [Unknown]
  - Insomnia [Not Recovered/Not Resolved]
  - Nausea [Not Recovered/Not Resolved]
  - Vomiting [Not Recovered/Not Resolved]
  - Fall [None]
  - Altered visual depth perception [None]
